FAERS Safety Report 9029765 (Version 1)
Quarter: 2013Q1

REPORT INFORMATION
  Report Type: Spontaneous
  Country: GB (occurrence: GB)
  Receive Date: 20130124
  Receipt Date: 20130124
  Transmission Date: 20140127
  Serious: Yes (Other)
  Sender: FDA-Public Use
  Company Number: GB-MYLANLABS-2013S1000939

PATIENT
  Age: 75 Year
  Sex: Male
  Weight: 99.8 kg

DRUGS (3)
  1. CLOPIDOGREL [Suspect]
     Indication: VASCULAR GRAFT
     Route: 048
     Dates: start: 20120511
  2. CO-CODAMOL [Concomitant]
     Indication: PRODUCT USED FOR UNKNOWN INDICATION
  3. THYROXINE [Concomitant]
     Indication: PRODUCT USED FOR UNKNOWN INDICATION

REACTIONS (2)
  - Drug interaction [Unknown]
  - Gastric disorder [Not Recovered/Not Resolved]
